FAERS Safety Report 8544720-6 (Version None)
Quarter: 2012Q3

REPORT INFORMATION
  Report Type: 
  Country: None (occurrence: None)
  Receive Date: 20120727
  Receipt Date: 20120718
  Transmission Date: 20120928
  Serious: Yes (Life-Threatening)
  Sender: FDA-Public Use
  Company Number: GB-BRISTOL-MYERS SQUIBB COMPANY-16799124

PATIENT
  Age: 63 Year
  Sex: Male

DRUGS (9)
  1. LEUCOVORIN CALCIUM [Suspect]
     Indication: COLON CANCER
     Route: 042
     Dates: start: 20120619
  2. FLUOROURACIL [Suspect]
     Indication: COLON CANCER
     Route: 042
     Dates: start: 20120619
  3. QUININE SULFATE [Concomitant]
     Indication: MUSCLE SPASMS
     Route: 048
  4. OMEPRAZOLE [Concomitant]
     Indication: GASTRITIS
     Route: 048
  5. ZOPICLONE [Concomitant]
     Route: 048
  6. LYRICA [Concomitant]
     Indication: PAIN
     Route: 048
  7. OXALIPLATIN [Suspect]
     Indication: COLON CANCER
     Route: 042
     Dates: start: 20120619
  8. ERBITUX [Suspect]
     Indication: COLON CANCER
     Route: 042
     Dates: start: 20120619
  9. MOBIC [Concomitant]
     Indication: ARTHRITIS
     Route: 048

REACTIONS (2)
  - ACUTE MYOCARDIAL INFARCTION [None]
  - ELECTROCARDIOGRAM ABNORMAL [None]
